FAERS Safety Report 4707764-8 (Version None)
Quarter: 2005Q2

REPORT INFORMATION
  Report Type: 
  Country: None (occurrence: None)
  Receive Date: 20050629
  Receipt Date: 20050415
  Transmission Date: 20051028
  Serious: No
  Sender: FDA-Public Use
  Company Number: 05P-163-0297586-00

PATIENT
  Age: 68 Year
  Sex: Female
  Weight: 73.4827 kg

DRUGS (8)
  1. HUMIRA [Suspect]
     Indication: RHEUMATOID ARTHRITIS
     Dosage: 40 MG, 1 IN 2 WK, SUBCUTANEOUS
     Route: 058
     Dates: start: 20020101, end: 20050301
  2. HUMIRA [Suspect]
     Indication: RHEUMATOID ARTHRITIS
     Dosage: 40 MG, 1 IN 2 WK, SUBCUTANEOUS
     Route: 058
     Dates: start: 20050325
  3. METHOTREXATE [Concomitant]
  4. LEVOTHYROXINE [Concomitant]
  5. FOLIC ACID [Concomitant]
  6. ESTRIOL [Concomitant]
  7. OMEPRAZOLE [Concomitant]
  8. ATENOLOL [Concomitant]

REACTIONS (3)
  - BRONCHITIS [None]
  - INFLUENZA [None]
  - WHEEZING [None]
